FAERS Safety Report 4310425-0 (Version None)
Quarter: 2004Q1

REPORT INFORMATION
  Report Type: 
  Country: None (occurrence: None)
  Receive Date: 20040303
  Receipt Date: 20040222
  Transmission Date: 20041129
  Serious: Yes (Other)
  Sender: FDA-Public Use
  Company Number: PHNU2004DE00996

PATIENT
  Sex: Male
  Weight: 90 kg

DRUGS (7)
  1. SANDIMMUNE [Suspect]
     Indication: CORNEAL TRANSPLANT
     Dosage: 300MG/DAY
     Dates: start: 19990101
  2. PENTOXIFYLLINE [Suspect]
     Dates: start: 20040208, end: 20040217
  3. DECORTIN [Concomitant]
  4. LEGALON [Concomitant]
  5. COSOPT [Concomitant]
  6. INFLANEFRAN [Concomitant]
  7. ALPHAGAN [Concomitant]

REACTIONS (7)
  - ALANINE AMINOTRANSFERASE INCREASED [None]
  - DEAFNESS [None]
  - GAMMA-GLUTAMYLTRANSFERASE INCREASED [None]
  - LIVER FUNCTION TEST ABNORMAL [None]
  - NUCLEAR MAGNETIC RESONANCE IMAGING ABNORMAL [None]
  - UVEITIS [None]
  - VASCULITIS [None]
